FAERS Safety Report 11225103 (Version 3)
Quarter: 2015Q3

REPORT INFORMATION
  Report Type: Spontaneous
  Country: US (occurrence: US)
  Receive Date: 20150629
  Receipt Date: 20150807
  Transmission Date: 20151125
  Serious: Yes (Hospitalization, Other)
  Sender: FDA-Public Use
  Company Number: US-PFIZER INC-2015212360

PATIENT
  Age: 81 Year
  Sex: Female
  Weight: 76 kg

DRUGS (2)
  1. LYRICA [Concomitant]
     Active Substance: PREGABALIN
     Dosage: 75 MG, UNK
  2. GABAPENTIN. [Suspect]
     Active Substance: GABAPENTIN
     Indication: JOINT INJURY
     Dosage: UNK, 3X/DAY

REACTIONS (4)
  - Fall [Recovered/Resolved]
  - Amnesia [Recovered/Resolved]
  - Balance disorder [Unknown]
  - Drug ineffective [Recovered/Resolved]
